FAERS Safety Report 5736038-1 (Version None)
Quarter: 2008Q2

REPORT INFORMATION
  Report Type: 
  Country: None (occurrence: None)
  Receive Date: 20080513
  Receipt Date: 20080513
  Transmission Date: 20081010
  Serious: Yes (Death, Life-Threatening, Other)
  Sender: FDA-Public Use
  Company Number: None

PATIENT
  Age: 72 Year
  Sex: Male
  Weight: 68.0396 kg

DRUGS (1)
  1. HEPARIN [Suspect]
     Indication: CEREBROVASCULAR ACCIDENT
     Dosage: VERY LARGE DOSE OVERNIGHT IV OVERNIGHT HOSPITAL STAY
     Route: 042
     Dates: start: 19960329, end: 19960330

REACTIONS (2)
  - COMA [None]
  - RESPIRATORY DISORDER [None]
